APPROVED DRUG PRODUCT: ALPRAZOLAM
Active Ingredient: ALPRAZOLAM
Strength: 2MG
Dosage Form/Route: TABLET;ORAL
Application: A090082 | Product #004
Applicant: SUN PHARMACEUTICAL INDUSTRIES LTD
Approved: Jun 17, 2010 | RLD: No | RS: No | Type: DISCN